FAERS Safety Report 6126987-7 (Version None)
Quarter: 2009Q1

REPORT INFORMATION
  Report Type: 
  Country: None (occurrence: None)
  Receive Date: 20090320
  Receipt Date: 20090311
  Transmission Date: 20090719
  Serious: Yes (Disabling, Other)
  Sender: FDA-Public Use
  Company Number: GB-MERCK-0903GBR00035

PATIENT
  Age: 4 Year
  Sex: Male

DRUGS (3)
  1. SINGULAIR [Suspect]
     Indication: ASTHMA
     Route: 048
     Dates: start: 20071101, end: 20090101
  2. BECLOMETHASONE DIPROPIONATE [Concomitant]
     Dates: start: 20071213
  3. AZITHROMYCIN [Concomitant]
     Indication: INFECTION PROPHYLAXIS
     Route: 048

REACTIONS (3)
  - AGGRESSION [None]
  - DISTURBANCE IN ATTENTION [None]
  - IRRITABILITY [None]
